FAERS Safety Report 4968722-1 (Version None)
Quarter: 2006Q2

REPORT INFORMATION
  Report Type: 
  Country: None (occurrence: None)
  Receive Date: 20060411
  Receipt Date: 20060403
  Transmission Date: 20061013
  Serious: Yes (Life-Threatening, Hospitalization)
  Sender: FDA-Public Use
  Company Number: BR-JNJFOC-20060306709

PATIENT
  Age: 50 Year
  Sex: Female

DRUGS (3)
  1. TYLENOL (CAPLET) [Suspect]
     Route: 048
  2. TYLENOL (CAPLET) [Suspect]
     Indication: MIGRAINE
     Dosage: 80 DROPS/DAY (APPROX. 1000MG - 1142 MG PER DAY) FOR MORE THAN 2 MONTHS, ORAL
     Route: 048
  3. OMEPRAZOLE [Concomitant]
     Indication: GASTRITIS
     Dosage: UNKNOWN; ORAL
     Route: 048

REACTIONS (1)
  - HEPATITIS TOXIC [None]
